FAERS Safety Report 10153809 (Version 5)
Quarter: 2015Q1

REPORT INFORMATION
  Report Type: Spontaneous
  Country: CA (occurrence: CA)
  Receive Date: 20140506
  Receipt Date: 20150323
  Transmission Date: 20150720
  Serious: Yes (Other)
  Sender: FDA-Public Use
  Company Number: CA-ROCHE-1392756

PATIENT
  Age: 65 Year
  Sex: Male

DRUGS (4)
  1. XOLAIR [Suspect]
     Active Substance: OMALIZUMAB
     Indication: ASTHMA
     Route: 058
     Dates: start: 20110818
  2. ADVAIR HFA [Concomitant]
     Active Substance: FLUTICASONE PROPIONATE\SALMETEROL XINAFOATE
  3. XOLAIR [Suspect]
     Active Substance: OMALIZUMAB
     Route: 058
     Dates: start: 20130212
  4. SALBUTAMOL [Concomitant]
     Active Substance: ALBUTEROL

REACTIONS (13)
  - Lung infection [Unknown]
  - Influenza [Unknown]
  - Headache [Unknown]
  - Hypotension [Unknown]
  - Lower respiratory tract infection [Unknown]
  - Upper respiratory tract infection [Unknown]
  - Infection [Unknown]
  - Respiratory rate increased [Unknown]
  - Dyspnoea [Unknown]
  - Bronchitis [Recovered/Resolved]
  - Malaise [Unknown]
  - Heart rate increased [Unknown]
  - Asthma [Unknown]

NARRATIVE: CASE EVENT DATE: 20120417
